FAERS Safety Report 15399564 (Version 1)
Quarter: 2018Q3

REPORT INFORMATION
  Report Type: Report from Study
  Country: US (occurrence: US)
  Receive Date: 20180918
  Receipt Date: 20180918
  Transmission Date: 20181010
  Serious: No
  Sender: FDA-Public Use
  Company Number: US-AMGEN-USASL2018095535

PATIENT
  Age: 63 Year
  Sex: Female

DRUGS (3)
  1. NEUPOGEN [Suspect]
     Active Substance: FILGRASTIM
     Indication: BRONCHIAL CARCINOMA
  2. NEUPOGEN [Suspect]
     Active Substance: FILGRASTIM
     Indication: LUNG NEOPLASM MALIGNANT
     Dosage: UNK UNK, QD (FOR 10 DAYS)
     Route: 065
  3. NEUPOGEN [Suspect]
     Active Substance: FILGRASTIM
     Indication: VITAMIN B COMPLEX DEFICIENCY

REACTIONS (1)
  - Off label use [Unknown]
